FAERS Safety Report 17338260 (Version 1)
Quarter: 2020Q1

REPORT INFORMATION
  Report Type: Report from Study
  Country: CO (occurrence: CO)
  Receive Date: 20200129
  Receipt Date: 20200129
  Transmission Date: 20200409
  Serious: Yes (Hospitalization, Other)
  Sender: FDA-Public Use
  Company Number: CO-ROCHE-2469417

PATIENT
  Sex: Female

DRUGS (1)
  1. CELLCEPT [Suspect]
     Active Substance: MYCOPHENOLATE MOFETIL\MYCOPHENOLATE MOFETIL HYDROCHLORIDE
     Indication: PRODUCT USED FOR UNKNOWN INDICATION
     Route: 048

REACTIONS (14)
  - Arthralgia [Unknown]
  - Urinary tract infection [Unknown]
  - Tympanic membrane disorder [Unknown]
  - Haemorrhage [Unknown]
  - Ear disorder [Unknown]
  - Immunodeficiency [Unknown]
  - Renal failure [Unknown]
  - Treatment noncompliance [Unknown]
  - Plantar fasciitis [Unknown]
  - Discomfort [Unknown]
  - Ear pain [Unknown]
  - Peripheral swelling [Unknown]
  - Pain in extremity [Unknown]
  - Headache [Unknown]
